FAERS Safety Report 15265378 (Version 1)
Quarter: 2018Q3

REPORT INFORMATION
  Report Type: Spontaneous
  Country: US (occurrence: US)
  Receive Date: 20180723
  Receipt Date: 20180723
  Transmission Date: 20181010
  Serious: Yes (Hospitalization)
  Sender: FDA-Public Use
  Company Number: None

PATIENT
  Age: 14 Year

DRUGS (4)
  1. CEFRODOXIME [Concomitant]
  2. SMZ?TMP [Concomitant]
     Active Substance: SULFAMETHOXAZOLE\TRIMETHOPRIM
  3. GABAPENTIN. [Concomitant]
     Active Substance: GABAPENTIN
  4. LEUKINE [Suspect]
     Active Substance: SARGRAMOSTIM
     Indication: HYPOPITUITARISM
     Route: 058
     Dates: start: 20180621

REACTIONS (1)
  - Hospitalisation [None]

NARRATIVE: CASE EVENT DATE: 20180715
